FAERS Safety Report 9606476 (Version 2)
Quarter: 2013Q4

REPORT INFORMATION
  Report Type: Spontaneous
  Country: US (occurrence: US)
  Receive Date: 20131008
  Receipt Date: 20131008
  Transmission Date: 20140711
  Serious: No
  Sender: FDA-Public Use
  Company Number: US-AMGEN-USASP2013051233

PATIENT
  Age: 57 Year
  Sex: Female
  Weight: 82.54 kg

DRUGS (6)
  1. PROLIA [Suspect]
     Indication: OSTEOPOROSIS POSTMENOPAUSAL
     Dosage: 60 MG/ML, Q6MO
     Route: 058
     Dates: start: 20120213
  2. PROLIA [Suspect]
     Dosage: UNK
     Route: 058
     Dates: end: 20121001
  3. XANAX [Concomitant]
     Dosage: 0.5 MG, QID
     Route: 048
  4. TOPROL [Concomitant]
     Dosage: 50 MG, QD
     Route: 048
  5. ULTRAM                             /00599202/ [Concomitant]
     Dosage: 50 MG, BID
     Route: 048
  6. DICLOFENAC [Concomitant]
     Route: 065

REACTIONS (3)
  - Chest discomfort [Recovered/Resolved]
  - Swollen tongue [Recovered/Resolved]
  - Hypersensitivity [Recovered/Resolved]
